FAERS Safety Report 13003143 (Version 2)
Quarter: 2017Q1

REPORT INFORMATION
  Report Type: Spontaneous
  Country: PL (occurrence: PL)
  Receive Date: 20161206
  Receipt Date: 20170110
  Transmission Date: 20170428
  Serious: Yes (Death, Hospitalization, Other)
  Sender: FDA-Public Use
  Company Number: PL-GILEAD-2016-0246751

PATIENT
  Age: 32 Year
  Sex: Male

DRUGS (5)
  1. STOCRIN [Concomitant]
     Active Substance: EFAVIRENZ
  2. EPIVIR [Concomitant]
     Active Substance: LAMIVUDINE
  3. NORVIR [Concomitant]
     Active Substance: RITONAVIR
  4. PREZISTA [Concomitant]
     Active Substance: DARUNAVIR ETHANOLATE
  5. VIREAD [Suspect]
     Active Substance: TENOFOVIR DISOPROXIL FUMARATE
     Indication: HIV INFECTION
     Route: 065

REACTIONS (3)
  - Staphylococcal sepsis [Unknown]
  - Deep vein thrombosis [Unknown]
  - Granuloma [Fatal]
